FAERS Safety Report 26128542 (Version 1)
Quarter: 2025Q4

REPORT INFORMATION
  Report Type: Spontaneous
  Country: EU (occurrence: EU)
  Receive Date: 20251207
  Receipt Date: 20251207
  Transmission Date: 20260117
  Serious: Yes (Other)
  Sender: NOVARTIS
  Company Number: EU-002147023-NVSC2025PT186529

PATIENT
  Age: 62 Year
  Sex: Male

DRUGS (6)
  1. AMLODIPINE\HYDROCHLOROTHIAZIDE\VALSARTAN [Suspect]
     Active Substance: AMLODIPINE\HYDROCHLOROTHIAZIDE\VALSARTAN
     Indication: Product used for unknown indication
     Dosage: 5-160 -25 MG
     Route: 065
  2. OMEPRAZOLE [Concomitant]
     Active Substance: OMEPRAZOLE
     Indication: Product used for unknown indication
     Dosage: 20 MG
     Route: 065
  3. ASPIRIN [Concomitant]
     Active Substance: ASPIRIN
     Indication: Product used for unknown indication
     Dosage: 100 MG
     Route: 065
  4. CLOPIDOGREL [Concomitant]
     Active Substance: CLOPIDOGREL BISULFATE
     Indication: Product used for unknown indication
     Dosage: 75 MG
     Route: 065
  5. BISOPROLOL [Concomitant]
     Active Substance: BISOPROLOL
     Indication: Product used for unknown indication
     Dosage: 5 MG
     Route: 065
  6. EZETIMIBE\ROSUVASTATIN [Concomitant]
     Active Substance: EZETIMIBE\ROSUVASTATIN
     Indication: Product used for unknown indication
     Dosage: 20-10 MG
     Route: 065

REACTIONS (8)
  - Barrett^s oesophagus [Unknown]
  - Spirochaetal infection [Unknown]
  - Gastrooesophageal reflux disease [Unknown]
  - Pseudopolyposis [Unknown]
  - Chronic gastritis [Unknown]
  - Bacterial disease carrier [Unknown]
  - Oedema [Unknown]
  - Diarrhoea [Unknown]
